FAERS Safety Report 17052406 (Version 1)
Quarter: 2019Q4

REPORT INFORMATION
  Report Type: Spontaneous
  Country: IT (occurrence: IT)
  Receive Date: 20191120
  Receipt Date: 20191120
  Transmission Date: 20200122
  Serious: Yes (Other)
  Sender: FDA-Public Use
  Company Number: NVSC2019IT036269

PATIENT
  Age: 58 Year
  Sex: Male

DRUGS (4)
  1. CERTICAN [Suspect]
     Active Substance: EVEROLIMUS
     Indication: RENAL TRANSPLANT
     Dosage: 0.75 MG, Q12H
     Route: 065
  2. TACROLIMUS. [Suspect]
     Active Substance: TACROLIMUS
     Indication: RENAL TRANSPLANT
     Dosage: 2 MG, ONCE/SINGLE
     Route: 048
  3. TACROLIMUS. [Suspect]
     Active Substance: TACROLIMUS
     Indication: IMMUNOSUPPRESSANT DRUG THERAPY
  4. CERTICAN [Suspect]
     Active Substance: EVEROLIMUS
     Indication: IMMUNOSUPPRESSANT DRUG THERAPY

REACTIONS (10)
  - Burning sensation [Unknown]
  - Dyslipidaemia [Unknown]
  - Limb discomfort [Unknown]
  - Lymphoedema [Unknown]
  - Peripheral swelling [Unknown]
  - Mobility decreased [Unknown]
  - Skin tightness [Unknown]
  - Hypertension [Unknown]
  - Glucose tolerance impaired [Unknown]
  - Gingival hypertrophy [Unknown]
